FAERS Safety Report 18485882 (Version 1)
Quarter: 2020Q4

REPORT INFORMATION
  Report Type: Spontaneous
  Country: US (occurrence: US)
  Receive Date: 20201110
  Receipt Date: 20201110
  Transmission Date: 20210114
  Serious: No
  Sender: FDA-Public Use
  Company Number: None

PATIENT
  Age: 22 Year
  Sex: Female
  Weight: 50.85 kg

DRUGS (3)
  1. ETONOGESTREL/ ETHINYL ESTRADOL VAGINAL RING [Suspect]
     Active Substance: ETHINYL ESTRADIOL\ETONOGESTREL
     Indication: ACNE
     Dates: start: 20200101, end: 20201110
  2. ETONOGESTREL/ ETHINYL ESTRADOL VAGINAL RING [Suspect]
     Active Substance: ETHINYL ESTRADIOL\ETONOGESTREL
     Indication: CONTRACEPTION
     Dates: start: 20200101, end: 20201110
  3. ETONOGESTREL/ ETHINYL ESTRADOL VAGINAL RING [Suspect]
     Active Substance: ETHINYL ESTRADIOL\ETONOGESTREL
     Indication: DYSMENORRHOEA
     Dates: start: 20200101, end: 20201110

REACTIONS (6)
  - Menorrhagia [None]
  - Device material issue [None]
  - Weight increased [None]
  - Uterine spasm [None]
  - Product substitution issue [None]
  - Discomfort [None]

NARRATIVE: CASE EVENT DATE: 20200901
